FAERS Safety Report 19291059 (Version 1)
Quarter: 2021Q2

REPORT INFORMATION
  Report Type: Spontaneous
  Country: US (occurrence: US)
  Receive Date: 20210523
  Receipt Date: 20210523
  Transmission Date: 20210717
  Serious: No
  Sender: FDA-Public Use
  Company Number: US-B.I. PHARMACEUTICALS,INC./RIDGEFIELD-2021-BI-105466

PATIENT
  Sex: Female

DRUGS (3)
  1. OFEV [Suspect]
     Active Substance: NINTEDANIB
     Indication: IDIOPATHIC PULMONARY FIBROSIS
     Dosage: 150MG BID
  2. OFEV [Suspect]
     Active Substance: NINTEDANIB
     Dosage: 100MG BID
  3. OFEV [Suspect]
     Active Substance: NINTEDANIB
     Dosage: 150MG BID

REACTIONS (3)
  - Depression [Unknown]
  - Constipation [Unknown]
  - Nausea [Unknown]
